FAERS Safety Report 6014867-7 (Version None)
Quarter: 2008Q4

REPORT INFORMATION
  Report Type: 
  Country: None (occurrence: None)
  Receive Date: 20081219
  Receipt Date: 20081217
  Transmission Date: 20090506
  Serious: Yes (Disabling)
  Sender: FDA-Public Use
  Company Number: AU-B.I. PHARMACEUTICALS,INC./RIDGEFIELD-2008-BP-15663AU

PATIENT
  Sex: Male
  Weight: 87 kg

DRUGS (4)
  1. MICARDIS [Suspect]
     Indication: HYPERTENSION
     Dosage: 80MG
     Route: 048
     Dates: start: 20040101, end: 20070101
  2. NEXIUM [Concomitant]
  3. HALCION [Concomitant]
  4. IMOVANE [Concomitant]

REACTIONS (5)
  - ABDOMINAL DISCOMFORT [None]
  - BACK PAIN [None]
  - ERUCTATION [None]
  - FATIGUE [None]
  - MUSCULOSKELETAL CHEST PAIN [None]
